FAERS Safety Report 7522630-0 (Version None)
Quarter: 2011Q2

REPORT INFORMATION
  Report Type: 
  Country: None (occurrence: None)
  Receive Date: 20110525
  Receipt Date: 20110516
  Transmission Date: 20111010
  Serious: Yes (Hospitalization, Other)
  Sender: FDA-Public Use
  Company Number: NSR_00233_2011

PATIENT
  Age: 40 Year
  Sex: Female

DRUGS (3)
  1. FAMOTIDINE [Concomitant]
  2. LAMOTRIGINE [Suspect]
     Indication: PRODUCT USED FOR UNKNOWN INDICATION
     Dosage: 6000 MG, [INGESTED 30 XR-LTG] ORAL
     Route: 048
  3. DEXAMETHASONE [Concomitant]

REACTIONS (11)
  - DELIRIUM [None]
  - AGITATION [None]
  - UNRESPONSIVE TO STIMULI [None]
  - HYPOTONIA [None]
  - HYPERREFLEXIA [None]
  - TOXICITY TO VARIOUS AGENTS [None]
  - CATATONIA [None]
  - TREMOR [None]
  - MULTIPLE DRUG OVERDOSE INTENTIONAL [None]
  - ENCEPHALOPATHY [None]
  - MUTISM [None]
